FAERS Safety Report 4461124-6 (Version None)
Quarter: 2004Q3

REPORT INFORMATION
  Report Type: 
  Country: None (occurrence: None)
  Receive Date: 20040923
  Receipt Date: 20040908
  Transmission Date: 20050211
  Serious: Yes (Other)
  Sender: FDA-Public Use
  Company Number: AZAUS200400087

PATIENT
  Age: 69 Year
  Sex: Female
  Weight: 53 kg

DRUGS (7)
  1. VIDAZA [Suspect]
     Indication: LEUKAEMIA RECURRENT
     Dosage: 150 MG/M2 (DAILY (CONTINUOUS IV INFUSION)), INTRAVENOUS
     Route: 042
     Dates: start: 20040817, end: 20040821
  2. FLUCONAZOLE [Concomitant]
  3. ACYCLOVIR [Concomitant]
  4. BVANCOMYCIN (VANCOMYCIN) [Concomitant]
  5. DOLASETRON (DOLASETRON) [Concomitant]
  6. CYTARABINE [Concomitant]
  7. MITOXANTRONE [Concomitant]

REACTIONS (2)
  - HALLUCINATION, VISUAL [None]
  - PARANOIA [None]
